FAERS Safety Report 18750176 (Version 4)
Quarter: 2021Q1

REPORT INFORMATION
  Report Type: Report from Study
  Country: US (occurrence: US)
  Receive Date: 20210118
  Receipt Date: 20210330
  Transmission Date: 20210419
  Serious: No
  Sender: FDA-Public Use
  Company Number: NVSC2021US008025

PATIENT
  Sex: Female

DRUGS (3)
  1. PROMACTA [Suspect]
     Active Substance: ELTROMBOPAG OLAMINE
     Dosage: 50 MG (EVERY THIRD DAY)
     Route: 048
  2. PROMACTA [Suspect]
     Active Substance: ELTROMBOPAG OLAMINE
     Dosage: 25 MG
     Route: 048
  3. PROMACTA [Suspect]
     Active Substance: ELTROMBOPAG OLAMINE
     Indication: IMMUNE THROMBOCYTOPENIA
     Dosage: UNK
     Route: 065

REACTIONS (12)
  - Gastritis [Unknown]
  - Gastrointestinal disorder [Unknown]
  - Constipation [Unknown]
  - Sleep disorder [Unknown]
  - Platelet count increased [Unknown]
  - Eye pruritus [Unknown]
  - Product use issue [Unknown]
  - Nausea [Unknown]
  - Pollakiuria [Unknown]
  - Myalgia [Unknown]
  - Abdominal pain [Unknown]
  - Diarrhoea [Unknown]
